FAERS Safety Report 5477735-5 (Version None)
Quarter: 2007Q4

REPORT INFORMATION
  Report Type: 
  Country: None (occurrence: None)
  Receive Date: 20071002
  Receipt Date: 20071002
  Transmission Date: 20080405
  Serious: Yes (Hospitalization, Disabling)
  Sender: FDA-Public Use
  Company Number: None

PATIENT

DRUGS (1)
  1. DROPERIDOL [Suspect]
     Indication: ENDOSCOPIC RETROGRADE CHOLANGIOPANCREATOGRAPHY
     Dosage: 5MG IV BOLUS
     Route: 040
     Dates: start: 20070926, end: 20070926

REACTIONS (2)
  - BLOOD PRESSURE DECREASED [None]
  - SEDATION [None]
